FAERS Safety Report 5748057-X (Version None)
Quarter: 2008Q2

REPORT INFORMATION
  Report Type: 
  Country: None (occurrence: None)
  Receive Date: 20080523
  Receipt Date: 20080513
  Transmission Date: 20081010
  Serious: Yes (Other)
  Sender: FDA-Public Use
  Company Number: US-ELI_LILLY_AND_COMPANY-US200704002791

PATIENT
  Age: 52 Year
  Sex: Female
  Weight: 130.61 kg

DRUGS (3)
  1. CYMBALTA [Suspect]
     Indication: DEPRESSION
     Dosage: 30 MG, DAILY (1/D)
  2. CYMBALTA [Suspect]
     Dosage: 20 MG, DAILY (1/D)
  3. CYMBALTA [Suspect]
     Dosage: 20 MG, DAILY (1/D)
     Dates: start: 20070501

REACTIONS (3)
  - ANGIOEDEMA [None]
  - GLOSSITIS [None]
  - SWOLLEN TONGUE [None]
